FAERS Safety Report 5117580-3 (Version None)
Quarter: 2006Q3

REPORT INFORMATION
  Report Type: 
  Country: None (occurrence: None)
  Receive Date: 20060929
  Receipt Date: 20060919
  Transmission Date: 20061208
  Serious: Yes (Death)
  Sender: FDA-Public Use
  Company Number: FR-ROCHE-463820

PATIENT
  Age: 53 Year
  Sex: Female

DRUGS (11)
  1. GANCICLOVIR [Suspect]
     Dosage: SECOND THERAPY. STARTED FIVE DAYS AFTER FIRST THERAPY WAS STOPPED.
     Route: 065
  2. GANCICLOVIR [Suspect]
     Route: 065
  3. ARGININE BUTYRATE [Suspect]
     Dosage: DRUG NAME: ARGININE BUTYRATE. ESCALATING DOSE OF LESS THAN OR EQUAL TO 1500 MG/KG. SECOND THERAPY S+
     Route: 065
  4. ARGININE BUTYRATE [Suspect]
     Dosage: DRUG NAME: ARGININE BUTYRATE. ESCALATING DOSE OF LESS THAN OR EQUAL TO 1500 MG/KG.
     Route: 065
  5. ADRIAMYCIN PFS [Concomitant]
     Dosage: THE PATIENT RECEIVED FOUR CYCLES OF TREATMENT IN COMBINATION WITH CYCLOPHOSPHAMIDE/BLEOMYCIN AND PR+
  6. CYCLOPHOSPHAMIDE [Concomitant]
     Dosage: THE PATIENT RECEIVED FOUR CYCLES OF TREATMENT IN COMBINATION WITH ADRIAMYCIN, BLEOMYCIN AND PREDNIS+
  7. BLEOMYCIN [Concomitant]
     Dosage: THE PATIENT RECEIVED FOUR CYCLES OF TREATMENT IN COMBINATION WITH ADRIAMYCIN, CYCLOPHOSPHAMIDE AND +
  8. PREDNISONE TAB [Concomitant]
     Dosage: THE PATIENT RECEIVED FOUR CYCLES OF TREATMENT IN COMBINATION WITH ADRIAMYCIN, CYCLOPHOSPHAMIDE AND +
  9. CISPLATIN [Concomitant]
     Dosage: SECOND LINE CHEMOTHERAPY IN COMBINATION WITH CYTOSINE ARABINOSIDE AND PREDNISOLONE.
  10. CYTOSINE ARABINOSIDE [Concomitant]
     Dosage: SECOND LINE CHEMOTHERAPY IN COMBINATION WITH CYTOSINE ARABINOSIDE AND PREDNISOLONE.
  11. PREDNISOLONE [Concomitant]
     Dosage: SECOND LINE CHEMOTHERAPY IN COMBINATION WITH CYTOSINE ARABINOSIDE AND PREDNISOLONE.

REACTIONS (1)
  - HEPATITIS [None]
